FAERS Safety Report 20074225 (Version 1)
Quarter: 2021Q4

REPORT INFORMATION
  Report Type: Spontaneous
  Country: CN (occurrence: CN)
  Receive Date: 20211116
  Receipt Date: 20211116
  Transmission Date: 20220304
  Serious: Yes (Disabling)
  Sender: FDA-Public Use
  Company Number: CN-SA-SAC20211112000709

PATIENT
  Age: 54 Year
  Sex: Female

DRUGS (3)
  1. CAPECITABINE [Suspect]
     Active Substance: CAPECITABINE
     Indication: Neoplasm
     Dosage: 1 G, BID
     Route: 048
     Dates: start: 20211004, end: 20211017
  2. OXALIPLATIN [Suspect]
     Active Substance: OXALIPLATIN
     Indication: Neoplasm
     Dosage: 140 MG, QD
     Route: 041
     Dates: start: 20211004, end: 20211004
  3. SINTILIMAB [Suspect]
     Active Substance: SINTILIMAB
     Indication: Neoplasm
     Dosage: 200 MG, QD
     Route: 041
     Dates: start: 20211004, end: 20211004

REACTIONS (1)
  - Platelet count decreased [Recovering/Resolving]

NARRATIVE: CASE EVENT DATE: 20211101
